FAERS Safety Report 6572711-3 (Version None)
Quarter: 2010Q1

REPORT INFORMATION
  Report Type: 
  Country: None (occurrence: None)
  Receive Date: 20100205
  Receipt Date: 20100202
  Transmission Date: 20100710
  Serious: Yes (Hospitalization)
  Sender: FDA-Public Use
  Company Number: FI-PFIZER INC-2010013510

PATIENT
  Age: 46 Year
  Sex: Male

DRUGS (6)
  1. LYRICA [Suspect]
     Indication: PAIN
     Dosage: 450 MG, 1X/DAY
     Dates: end: 20090901
  2. DIAZEPAM [Suspect]
     Dosage: UNK
  3. METHADONE HYDROCHLORIDE [Suspect]
     Indication: DRUG WITHDRAWAL MAINTENANCE THERAPY
     Dosage: 75 MG, 1X/DAY
     Dates: start: 20081101
  4. RIVATRIL [Suspect]
     Indication: SEDATIVE THERAPY
     Dosage: 2 MG, 3X/DAY
  5. MAREVAN ^ORION^ [Suspect]
     Dosage: UNK
  6. NEXIUM [Suspect]
     Dosage: UNK

REACTIONS (11)
  - CONFUSIONAL STATE [None]
  - DEPRESSED LEVEL OF CONSCIOUSNESS [None]
  - FATIGUE [None]
  - MALAISE [None]
  - MEMORY IMPAIRMENT [None]
  - MIOSIS [None]
  - OEDEMA PERIPHERAL [None]
  - OVERDOSE [None]
  - PALLOR [None]
  - PNEUMONIA ASPIRATION [None]
  - SOMNOLENCE [None]
